FAERS Safety Report 7383267-X (Version None)
Quarter: 2011Q1

REPORT INFORMATION
  Report Type: 
  Country: None (occurrence: None)
  Receive Date: 20110324
  Receipt Date: 20110324
  Transmission Date: 20110831
  Serious: Yes (Hospitalization)
  Sender: FDA-Public Use
  Company Number: None

PATIENT
  Age: 74 Year
  Sex: Female

DRUGS (9)
  1. AVAPRO [Concomitant]
  2. FISH OIL [Concomitant]
  3. HYDROCHLOROTHIAZIDE [Concomitant]
  4. COUMADIN [Concomitant]
  5. LEVAQUIN [Concomitant]
  6. BOSENTAN [Suspect]
     Indication: SARCOIDOSIS
     Dosage: 125MG BID ORAL
     Route: 048
     Dates: start: 20100217
  7. BOSENTAN [Suspect]
     Indication: PULMONARY HYPERTENSION
     Dosage: 125MG BID ORAL
     Route: 048
     Dates: start: 20100217
  8. PREDNISONE [Concomitant]
  9. METROPOLOL [Concomitant]

REACTIONS (3)
  - DIZZINESS [None]
  - BLOOD PRESSURE DECREASED [None]
  - DEHYDRATION [None]
